FAERS Safety Report 9917704 (Version 2)
Quarter: 2014Q2

REPORT INFORMATION
  Report Type: Spontaneous
  Country: GB (occurrence: GB)
  Receive Date: 20140221
  Receipt Date: 20140407
  Transmission Date: 20141212
  Serious: Yes (Other)
  Sender: FDA-Public Use
  Company Number: GB-ABBVIE-14P-167-1204374-00

PATIENT
  Age: 50 Year
  Sex: Male

DRUGS (2)
  1. EPILIM CHRONO [Suspect]
     Indication: PRODUCT USED FOR UNKNOWN INDICATION
     Dosage: EXTENDED RELEASE
     Route: 065
  2. EPILIM CHRONO [Suspect]
     Dosage: EXTENDED RELEASE
     Route: 065

REACTIONS (1)
  - Convulsion [Unknown]
